FAERS Safety Report 6227750-9 (Version None)
Quarter: 2009Q2

REPORT INFORMATION
  Report Type: 
  Country: None (occurrence: None)
  Receive Date: 20090612
  Receipt Date: 20090609
  Transmission Date: 20091009
  Serious: Yes (Death, Other)
  Sender: FDA-Public Use
  Company Number: JP-BAYER-200911925BYL

PATIENT
  Age: 59 Year
  Sex: Male
  Weight: 83 kg

DRUGS (8)
  1. NEXAVAR [Suspect]
     Indication: RENAL CELL CARCINOMA STAGE II
     Dosage: TOTAL DAILY DOSE: 400 MG  UNIT DOSE: 200 MG
     Route: 048
     Dates: start: 20081204, end: 20081219
  2. NEXAVAR [Suspect]
     Dosage: UNIT DOSE: 200 MG
     Route: 048
     Dates: start: 20090107, end: 20090217
  3. NEXAVAR [Suspect]
     Dosage: UNIT DOSE: 200 MG
     Route: 048
     Dates: start: 20090511, end: 20090516
  4. NEXAVAR [Suspect]
     Dosage: UNIT DOSE: 200 MG
     Route: 048
     Dates: start: 20090603
  5. OMEPRAL [Concomitant]
     Route: 048
     Dates: start: 20070530
  6. HALCION [Concomitant]
     Route: 048
     Dates: start: 20070727
  7. DIOVAN [Concomitant]
     Route: 048
     Dates: start: 20070216
  8. NORVASC [Concomitant]
     Route: 048
     Dates: start: 20070530

REACTIONS (4)
  - HEPATIC FUNCTION ABNORMAL [None]
  - HYPERTENSION [None]
  - MYOCARDIAL ISCHAEMIA [None]
  - PLATELET COUNT DECREASED [None]
